FAERS Safety Report 17136962 (Version 1)
Quarter: 2019Q4

REPORT INFORMATION
  Report Type: Report from Study
  Country: BR (occurrence: BR)
  Receive Date: 20191210
  Receipt Date: 20191210
  Transmission Date: 20200122
  Serious: Yes (Death, Hospitalization, Other)
  Sender: FDA-Public Use
  Company Number: BR-BAYER-2019-180562

PATIENT
  Age: 64 Year
  Sex: Male

DRUGS (4)
  1. NEXAVAR [Suspect]
     Active Substance: SORAFENIB
     Indication: HEPATOCELLULAR CARCINOMA
     Dosage: 3 DF, QD
     Route: 048
     Dates: start: 2019, end: 2019
  2. TRAMADOL. [Concomitant]
     Active Substance: TRAMADOL
     Indication: PAIN
     Dosage: 50 MG
  3. NEXAVAR [Suspect]
     Active Substance: SORAFENIB
     Indication: HEPATOCELLULAR CARCINOMA
     Dosage: 4 DF, QD
     Route: 048
     Dates: start: 20190701, end: 20191121
  4. NEXAVAR [Suspect]
     Active Substance: SORAFENIB
     Indication: HEPATOCELLULAR CARCINOMA
     Dosage: 4 DF, QD
     Route: 048
     Dates: start: 201905, end: 2019

REACTIONS (22)
  - Diarrhoea haemorrhagic [Fatal]
  - Eating disorder [None]
  - Haemorrhage [Fatal]
  - Weight decreased [None]
  - Amnesia [None]
  - Pyrexia [None]
  - Varicose vein [None]
  - Apathy [None]
  - Vascular pain [None]
  - Oral disorder [None]
  - Nausea [None]
  - Dyspnoea [None]
  - Skin lesion [None]
  - Haemorrhage [None]
  - Rash [None]
  - Skin wound [None]
  - Feeling cold [None]
  - Rash macular [None]
  - Productive cough [None]
  - Abdominal pain upper [None]
  - Dry skin [None]
  - Wound haemorrhage [None]

NARRATIVE: CASE EVENT DATE: 2019
